FAERS Safety Report 10186918 (Version 2)
Quarter: 2014Q3

REPORT INFORMATION
  Report Type: Spontaneous
  Country: US (occurrence: US)
  Receive Date: 20140522
  Receipt Date: 20140806
  Transmission Date: 20150326
  Serious: No
  Sender: FDA-Public Use
  Company Number: US-009507513-1405USA010898

PATIENT
  Age: 72 Year
  Sex: Female

DRUGS (4)
  1. AMLODIPINE [Concomitant]
     Active Substance: AMLODIPINE BESYLATE
     Indication: BLOOD PRESSURE
     Dosage: UNK, UNKNOWN
  2. CALCIUM (UNSPECIFIED) (+) VITAMIN D (UNSPECIFIED) [Concomitant]
     Active Substance: CALCIUM CARBONATE\VITAMIN D
     Indication: OSTEOPOROSIS PROPHYLAXIS
     Dosage: UNK, UNKNOWN
  3. OSTEO-BI-FLEX (OLD FORMULA) [Concomitant]
     Indication: OSTEOPOROSIS PROPHYLAXIS
     Dosage: UNK, UNKNOWN
  4. OXYTROL FOR WOMEN [Suspect]
     Active Substance: OXYBUTYNIN
     Indication: HYPERTONIC BLADDER
     Dosage: 1 DF, Q4D
     Route: 062
     Dates: start: 20140508, end: 20140703

REACTIONS (3)
  - Pruritus [Unknown]
  - Erythema [Unknown]
  - Application site warmth [Unknown]

NARRATIVE: CASE EVENT DATE: 201405
